FAERS Safety Report 7293739-4 (Version None)
Quarter: 2011Q1

REPORT INFORMATION
  Report Type: 
  Country: None (occurrence: None)
  Receive Date: 20110215
  Receipt Date: 20110202
  Transmission Date: 20110831
  Serious: Yes (Hospitalization, Other)
  Sender: FDA-Public Use
  Company Number: US-ELI_LILLY_AND_COMPANY-US201102000935

PATIENT
  Sex: Female

DRUGS (8)
  1. ZYPREXA [Suspect]
     Dosage: 2.5 MG, UNK
     Dates: start: 20030101, end: 20030101
  2. INSULIN [Concomitant]
  3. ZYPREXA [Suspect]
     Dosage: 20 MG, UNK
  4. ZYPREXA ZYDIS [Suspect]
     Dosage: 10 MG, DAILY (1/D)
     Dates: start: 20100801
  5. PALIPERIDONE [Concomitant]
  6. SEROQUEL [Concomitant]
  7. ZYPREXA [Suspect]
     Indication: SCHIZOPHRENIA
     Dosage: UNK, UNKNOWN
  8. ZYPREXA ZYDIS [Suspect]
     Indication: SCHIZOPHRENIA
     Dosage: 10 MG, DAILY (1/D)
     Dates: start: 20030101

REACTIONS (17)
  - HALLUCINATION [None]
  - LARYNGEAL OEDEMA [None]
  - WEIGHT INCREASED [None]
  - MYALGIA [None]
  - COMA [None]
  - VAGINAL HAEMORRHAGE [None]
  - BLOOD GLUCOSE INCREASED [None]
  - NAUSEA [None]
  - SENSATION OF PRESSURE [None]
  - CHOKING SENSATION [None]
  - INTENTIONAL DRUG MISUSE [None]
  - OFF LABEL USE [None]
  - HOSPITALISATION [None]
  - LOSS OF CONSCIOUSNESS [None]
  - MALAISE [None]
  - CONSTIPATION [None]
  - ABDOMINAL PAIN UPPER [None]
